FAERS Safety Report 5062806-8 (Version None)
Quarter: 2006Q3

REPORT INFORMATION
  Report Type: 
  Country: None (occurrence: None)
  Receive Date: 20060725
  Receipt Date: 20060725
  Transmission Date: 20061208
  Serious: Yes (Hospitalization)
  Sender: FDA-Public Use
  Company Number: None

PATIENT
  Age: 50 Year
  Sex: Female
  Weight: 101.2 kg

DRUGS (16)
  1. NEORAL [Suspect]
     Indication: RENAL TRANSPLANT
     Dosage: 200 B.I.D. PO
     Route: 048
     Dates: start: 20060614, end: 20060721
  2. CELLCEPT [Suspect]
     Indication: RENAL TRANSPLANT
     Dosage: 750 B.I.D. PO
     Route: 048
     Dates: start: 20060614, end: 20060724
  3. NEORAL [Concomitant]
  4. CELLCEPT [Concomitant]
  5. BACTRIM [Concomitant]
  6. VALGANCICLOVIR HCL [Concomitant]
  7. IRON [Concomitant]
  8. MULTI-VITAMIN [Concomitant]
  9. PANTOPRAZOLE SODIUM [Concomitant]
  10. RIVOGLITAZONE [Concomitant]
  11. GLIPIZIDE [Concomitant]
  12. NOVOLOG INSULIN SLIDING SCALE [Concomitant]
  13. FLONASE [Concomitant]
  14. AMLODIPINE [Concomitant]
  15. DOXYCYCLINE HCL [Concomitant]
  16. LASIX [Concomitant]

REACTIONS (6)
  - CONDITION AGGRAVATED [None]
  - DIABETES MELLITUS [None]
  - DRUG INEFFECTIVE [None]
  - GRAFT COMPLICATION [None]
  - KIDNEY TRANSPLANT REJECTION [None]
  - RENAL TUBULAR NECROSIS [None]
